FAERS Safety Report 4446998-7 (Version None)
Quarter: 2004Q3

REPORT INFORMATION
  Report Type: 
  Country: None (occurrence: None)
  Receive Date: 20040812
  Receipt Date: 20040416
  Transmission Date: 20050211
  Serious: No
  Sender: FDA-Public Use
  Company Number: USA040465072

PATIENT
  Age: 65 Year
  Sex: Male
  Weight: 73 kg

DRUGS (3)
  1. CIALIS [Suspect]
     Dosage: 20 MG AS NEEDED
  2. ASPIRIN [Concomitant]
  3. NIACIN [Concomitant]

REACTIONS (2)
  - HEADACHE [None]
  - TINNITUS [None]
